FAERS Safety Report 12355986 (Version 2)
Quarter: 2016Q2

REPORT INFORMATION
  Report Type: Report from Study
  Country: US (occurrence: US)
  Receive Date: 20160511
  Receipt Date: 20160511
  Transmission Date: 20160815
  Serious: Yes (Other)
  Sender: FDA-Public Use
  Company Number: US-BAYER-2016-081498

PATIENT
  Age: 41 Year
  Sex: Female
  Weight: 60 kg

DRUGS (6)
  1. GABAPENTIN. [Concomitant]
     Active Substance: GABAPENTIN
  2. COLACE [Concomitant]
     Active Substance: DOCUSATE SODIUM
  3. SCOPOLAMINE HYDROBROMIDE. [Concomitant]
     Active Substance: SCOPOLAMINE HYDROBROMIDE
  4. STIVARGA [Suspect]
     Active Substance: REGORAFENIB
     Indication: COLORECTAL CANCER
     Dosage: 160 MG, QD
     Route: 048
     Dates: start: 20160422
  5. STIVARGA [Suspect]
     Active Substance: REGORAFENIB
     Indication: COLON CANCER
  6. MORPHINE SULPHATE [Concomitant]
     Active Substance: MORPHINE SULFATE

REACTIONS (8)
  - Dyspnoea [None]
  - Dysphonia [Unknown]
  - Flank pain [None]
  - Gait disturbance [Unknown]
  - Headache [None]
  - Myalgia [Unknown]
  - Renal pain [None]
  - Pain [Unknown]

NARRATIVE: CASE EVENT DATE: 20160423
